FAERS Safety Report 6431627-3 (Version None)
Quarter: 2009Q4

REPORT INFORMATION
  Report Type: 
  Country: None (occurrence: None)
  Receive Date: 20091103
  Receipt Date: 20091019
  Transmission Date: 20100525
  Serious: Yes (Death)
  Sender: FDA-Public Use
  Company Number: 1000009788

PATIENT
  Age: 33 Year
  Sex: Male

DRUGS (2)
  1. ESCITALOPRAM OXALATE [Suspect]
  2. CANNABIS [Concomitant]

REACTIONS (2)
  - DRUG DEPENDENCE [None]
  - NON-CARDIOGENIC PULMONARY OEDEMA [None]
